FAERS Safety Report 9897158 (Version 1)
Quarter: 2014Q1

REPORT INFORMATION
  Report Type: Report from Study
  Country: CA (occurrence: CA)
  Receive Date: 20140214
  Receipt Date: 20140214
  Transmission Date: 20141002
  Serious: Yes (Death, Other)
  Sender: FDA-Public Use
  Company Number: CA-BRISTOL-MYERS SQUIBB COMPANY-20146874

PATIENT
  Age: 59 Year
  Sex: Female

DRUGS (8)
  1. ORENCIA [Suspect]
     Indication: RHEUMATOID ARTHRITIS
     Dosage: 750 NO UNITS
     Dates: start: 20120326, end: 20130411
  2. IRON [Concomitant]
  3. VITAMIN D3 [Concomitant]
  4. RAMIPRIL [Concomitant]
  5. SYNTHROID [Concomitant]
  6. PLAQUENIL [Concomitant]
  7. PREDNISONE [Concomitant]
  8. RABEPRAZOLE [Concomitant]

REACTIONS (5)
  - Respiratory failure [Fatal]
  - Renal failure acute [Fatal]
  - Intracardiac thrombus [Fatal]
  - Myocardial infarction [Fatal]
  - Blood pressure fluctuation [Unknown]
